FAERS Safety Report 4920693-X (Version None)
Quarter: 2006Q1

REPORT INFORMATION
  Report Type: 
  Country: None (occurrence: None)
  Receive Date: 20060216
  Receipt Date: 20060209
  Transmission Date: 20060701
  Serious: Yes (Hospitalization)
  Sender: FDA-Public Use
  Company Number: 219285

PATIENT
  Age: 12 Year
  Sex: Male
  Weight: 35 kg

DRUGS (5)
  1. XOLAIR [Suspect]
     Indication: ASTHMA
     Dosage: SUBCUTANEOUS
     Route: 058
     Dates: start: 20051020
  2. SALBUTAMOL                           (ALBUTEROL/ALBUTEROL SULFATE) [Concomitant]
  3. FLUTICASONE (FLUTICASONE PROPIONATE) [Concomitant]
  4. SALMETEROL XINAFOATE INHALER (SALMETEROL XINAFOATE) [Concomitant]
  5. PREDNISONE TAB [Concomitant]

REACTIONS (8)
  - ASTHMA [None]
  - CHEST PAIN [None]
  - CONDITION AGGRAVATED [None]
  - DYSURIA [None]
  - LETHARGY [None]
  - PAIN IN EXTREMITY [None]
  - PRURITUS [None]
  - RASH [None]
